FAERS Safety Report 7985618-1 (Version None)
Quarter: 2011Q4

REPORT INFORMATION
  Report Type: 
  Country: None (occurrence: None)
  Receive Date: 20111216
  Receipt Date: 20111207
  Transmission Date: 20120403
  Serious: Yes (Other)
  Sender: FDA-Public Use
  Company Number: AU-EISAI INC-E3810-05151-SPO-AU

PATIENT
  Sex: Female

DRUGS (1)
  1. RABEPRAZOLE SODIUM [Suspect]
     Dosage: UNKNOWN
     Route: 065

REACTIONS (1)
  - RENAL IMPAIRMENT [None]
